FAERS Safety Report 13844249 (Version 3)
Quarter: 2017Q3

REPORT INFORMATION
  Report Type: Spontaneous
  Country: US (occurrence: US)
  Receive Date: 20170808
  Receipt Date: 20170912
  Transmission Date: 20171127
  Serious: Yes (Other)
  Sender: FDA-Public Use
  Company Number: US-PFIZER INC-2017341276

PATIENT
  Age: 57 Year
  Sex: Female

DRUGS (4)
  1. NEURONTIN [Suspect]
     Active Substance: GABAPENTIN
     Indication: PARAESTHESIA
     Dosage: 100 MG, 1X/DAY
     Dates: start: 20161017
  2. NEURONTIN [Suspect]
     Active Substance: GABAPENTIN
     Dosage: 200 MG, 1X/DAY
     Dates: end: 20161217
  3. TRAMADOL. [Concomitant]
     Active Substance: TRAMADOL
     Dosage: UNK
  4. CYMBALTA [Concomitant]
     Active Substance: DULOXETINE HYDROCHLORIDE
     Dosage: UNK

REACTIONS (16)
  - Insomnia [Recovered/Resolved]
  - Suicidal ideation [Recovered/Resolved]
  - Withdrawal syndrome [Not Recovered/Not Resolved]
  - Feeling abnormal [Unknown]
  - Abnormal dreams [Recovered/Resolved]
  - Weight increased [Unknown]
  - Heart rate increased [Unknown]
  - Product use in unapproved indication [Unknown]
  - Anxiety [Recovered/Resolved]
  - Irritability [Unknown]
  - General physical health deterioration [Not Recovered/Not Resolved]
  - Night sweats [Unknown]
  - Headache [Unknown]
  - Dyspnoea [Recovered/Resolved]
  - Head discomfort [Not Recovered/Not Resolved]
  - Fatigue [Unknown]

NARRATIVE: CASE EVENT DATE: 20161017
